FAERS Safety Report 7505678-1 (Version None)
Quarter: 2011Q2

REPORT INFORMATION
  Report Type: 
  Country: None (occurrence: None)
  Receive Date: 20110526
  Receipt Date: 20110517
  Transmission Date: 20111010
  Serious: Yes (Other)
  Sender: FDA-Public Use
  Company Number: CN-ASTRAZENECA-2011SE27639

PATIENT
  Age: 62 Year
  Sex: Male

DRUGS (2)
  1. LIDOCAINE [Suspect]
     Indication: EPIDURAL ANAESTHESIA
     Route: 008
  2. BUPIVACAINE HCL [Suspect]
     Indication: EPIDURAL ANAESTHESIA
     Route: 008

REACTIONS (3)
  - HYPOTONIA [None]
  - NERVOUS SYSTEM DISORDER [None]
  - HYPOAESTHESIA [None]
